FAERS Safety Report 21510481 (Version 1)
Quarter: 2022Q4

REPORT INFORMATION
  Report Type: Spontaneous
  Country: SI (occurrence: SI)
  Receive Date: 20221026
  Receipt Date: 20221026
  Transmission Date: 20230112
  Serious: No
  Sender: FDA-Public Use
  Company Number: SI-JAZZ-2022-SI-031315

PATIENT
  Age: 17 Year
  Sex: Female

DRUGS (1)
  1. XYREM [Suspect]
     Active Substance: SODIUM OXYBATE
     Indication: Product used for unknown indication
     Dosage: MORE THAN 3 GRAM
     Route: 065

REACTIONS (1)
  - Gastrointestinal disorder [Unknown]
